FAERS Safety Report 22038540 (Version 1)
Quarter: 2023Q1

REPORT INFORMATION
  Report Type: Spontaneous
  Country: BR (occurrence: BR)
  Receive Date: 20230227
  Receipt Date: 20230227
  Transmission Date: 20230418
  Serious: Yes (Other)
  Sender: FDA-Public Use
  Company Number: BR-MLMSERVICE-20230209-4092455-1

PATIENT
  Age: 74 Year
  Sex: Male

DRUGS (7)
  1. DEXAMETHASONE [Suspect]
     Active Substance: DEXAMETHASONE
     Indication: COVID-19
     Dosage: 6 TO 10 MILLIGRAM
     Route: 065
     Dates: start: 2021, end: 2021
  2. DEXAMETHASONE [Suspect]
     Active Substance: DEXAMETHASONE
     Indication: COVID-19
     Dosage: 6 TO 10 MILLIGRAM
     Route: 065
     Dates: start: 2021, end: 2021
  3. CEFTRIAXONE [Suspect]
     Active Substance: CEFTRIAXONE
     Indication: Evidence based treatment
     Route: 042
     Dates: start: 202101
  4. AZITHROMYCIN [Suspect]
     Active Substance: AZITHROMYCIN
     Indication: Evidence based treatment
     Route: 048
     Dates: start: 202101
  5. PREDNISONE [Suspect]
     Active Substance: PREDNISONE
     Indication: COVID-19
     Route: 065
     Dates: start: 2021, end: 2021
  6. MEROPENEM [Suspect]
     Active Substance: MEROPENEM
     Indication: Evidence based treatment
     Route: 042
     Dates: start: 2021
  7. VANCOMYCIN [Suspect]
     Active Substance: VANCOMYCIN
     Indication: Evidence based treatment
     Route: 042
     Dates: start: 2021

REACTIONS (2)
  - Urinary tract infection fungal [Unknown]
  - Trichosporon infection [Unknown]

NARRATIVE: CASE EVENT DATE: 20210101
